FAERS Safety Report 22536057 (Version 1)
Quarter: 2023Q2

REPORT INFORMATION
  Report Type: Spontaneous
  Country: US (occurrence: None)
  Receive Date: 20230607
  Receipt Date: 20230607
  Transmission Date: 20230722
  Serious: No
  Sender: FDA-Public Use
  Company Number: None

PATIENT
  Age: 51 Year
  Sex: Female

DRUGS (2)
  1. JAKAFI [Suspect]
     Active Substance: RUXOLITINIB
     Dosage: FREQUENCY : TWICE A DAY;?
     Route: 048
     Dates: start: 20230322
  2. JAKAFI [Concomitant]
     Active Substance: RUXOLITINIB
     Dates: start: 20230322

REACTIONS (1)
  - Therapy change [None]

NARRATIVE: CASE EVENT DATE: 20230607
